FAERS Safety Report 7292843-4 (Version None)
Quarter: 2011Q1

REPORT INFORMATION
  Report Type: 
  Country: None (occurrence: None)
  Receive Date: 20110215
  Receipt Date: 20110203
  Transmission Date: 20110831
  Serious: Yes (Other)
  Sender: FDA-Public Use
  Company Number: DE-PFIZER INC-2011005866

PATIENT
  Sex: Male
  Weight: 62 kg

DRUGS (8)
  1. BLINDED THERAPY [Suspect]
     Indication: PULMONARY ARTERIAL HYPERTENSION
     Dosage: UNK, 3X/DAY
     Route: 048
     Dates: start: 20100819, end: 20110103
  2. BISOPROLOL [Concomitant]
     Dosage: UNK
     Dates: start: 20090701
  3. LASIX [Concomitant]
     Dosage: UNK
     Dates: start: 20100428, end: 20101222
  4. MARCUMAR [Concomitant]
     Dosage: UNK
     Dates: start: 20080603
  5. INSPRA [Concomitant]
     Dosage: UNK
     Dates: start: 20101112
  6. SILDENAFIL CITRATE [Suspect]
     Indication: PULMONARY HYPERTENSION
     Dosage: 60 MG, UNK
     Route: 048
     Dates: start: 20080603
  7. ALLOPURINOL [Concomitant]
     Dosage: UNK
     Dates: start: 20050101
  8. BEGRIVAC ^BEHRING^ [Concomitant]
     Dosage: UNK
     Dates: start: 20101011, end: 20101011

REACTIONS (1)
  - LOSS OF CONSCIOUSNESS [None]
